FAERS Safety Report 17846442 (Version 1)
Quarter: 2020Q2

REPORT INFORMATION
  Report Type: Spontaneous
  Country: BR (occurrence: BR)
  Receive Date: 20200530
  Receipt Date: 20200530
  Transmission Date: 20200714
  Serious: Yes (Life-Threatening, Disabling)
  Sender: FDA-Public Use
  Company Number: None

PATIENT
  Age: 24 Year
  Sex: Male
  Weight: 62 kg

DRUGS (3)
  1. SODIUM CHLORITE [Suspect]
     Active Substance: SODIUM CHLORITE
     Indication: ALLERGY TO ARTHROPOD BITE
     Dates: start: 20200327, end: 20200327
  2. MAGNESIUM [Concomitant]
     Active Substance: MAGNESIUM
  3. OMEGA 3 [Concomitant]
     Active Substance: OMEGA-3 FATTY ACIDS

REACTIONS (1)
  - Poisoning [None]

NARRATIVE: CASE EVENT DATE: 20200327
